FAERS Safety Report 6983867-2 (Version None)
Quarter: 2010Q3

REPORT INFORMATION
  Report Type: 
  Country: None (occurrence: None)
  Receive Date: 20100914
  Receipt Date: 20090318
  Transmission Date: 20110219
  Serious: No
  Sender: FDA-Public Use
  Company Number: US-WYE-H08649009

PATIENT
  Age: 3 Year
  Sex: Female
  Weight: 0.03 kg

DRUGS (2)
  1. CHILDREN'S ADVIL [Suspect]
     Indication: PYREXIA
     Dosage: 3/4 TO 1 TEASPOON AS NEEDED 3 TIMES PER WEEK
     Route: 048
     Dates: start: 20040101, end: 20090101
  2. CHILDREN'S ADVIL [Suspect]
     Indication: PAIN

REACTIONS (5)
  - COUGH [None]
  - EOSINOPHILIC OESOPHAGITIS [None]
  - PAIN [None]
  - PYREXIA [None]
  - WHEEZING [None]
